FAERS Safety Report 14712569 (Version 1)
Quarter: 2018Q2

REPORT INFORMATION
  Report Type: Spontaneous
  Country: FR (occurrence: FR)
  Receive Date: 20180404
  Receipt Date: 20180404
  Transmission Date: 20180711
  Serious: Yes (Disabling)
  Sender: FDA-Public Use
  Company Number: FR-ABBVIE-18S-056-2308171-00

PATIENT
  Sex: Male

DRUGS (5)
  1. OMIX [Suspect]
     Active Substance: TAMSULOSIN HYDROCHLORIDE
     Indication: ARTHRODESIS
     Route: 048
     Dates: start: 2015
  2. DEPAKOTE [Suspect]
     Active Substance: DIVALPROEX SODIUM
     Indication: ARTHRODESIS
     Route: 048
     Dates: start: 2012
  3. LAROXYL [Concomitant]
     Active Substance: AMITRIPTYLINE HYDROCHLORIDE
     Indication: PRODUCT USED FOR UNKNOWN INDICATION
  4. PARKINANE [Concomitant]
     Active Substance: TRIHEXYPHENIDYL HYDROCHLORIDE
     Indication: PRODUCT USED FOR UNKNOWN INDICATION
  5. TERCIAN [Suspect]
     Active Substance: CYAMEMAZINE
     Indication: ARTHRODESIS
     Route: 048
     Dates: start: 2015

REACTIONS (5)
  - Erection increased [Unknown]
  - Memory impairment [Unknown]
  - Muscular weakness [Unknown]
  - Neurogenic bladder [Not Recovered/Not Resolved]
  - Ejaculation disorder [Unknown]

NARRATIVE: CASE EVENT DATE: 20121201
